FAERS Safety Report 17174897 (Version 1)
Quarter: 2019Q4

REPORT INFORMATION
  Report Type: Other
  Country: CA (occurrence: CA)
  Receive Date: 20191219
  Receipt Date: 20191219
  Transmission Date: 20200122
  Serious: Yes (Hospitalization, Other)
  Sender: FDA-Public Use
  Company Number: CA-BECTON DICKINSON-2019BDN00430

PATIENT
  Age: 44 Year
  Sex: Female

DRUGS (16)
  1. MILTEFOSINE [Suspect]
     Active Substance: MILTEFOSINE
     Dosage: 50 MG, 3 EVERY 1 DAY(S)
     Route: 048
  2. VORICONAZOLE. [Suspect]
     Active Substance: VORICONAZOLE
     Dosage: UNK, EVERY 1 HOUR(S)
     Route: 061
  3. PREDNISOLONE ACETATE. [Concomitant]
     Active Substance: PREDNISOLONE ACETATE
     Dosage: UNK, 4 EVERY 1 DAY(S)
     Route: 061
  4. CHLORHEXIDINE [Suspect]
     Active Substance: CHLORHEXIDINE
     Dosage: UNK
  5. POLYHEXANIDE [Suspect]
     Active Substance: POLIHEXANIDE
     Dosage: UNK, EVERY 2 HOUR(S)
     Route: 061
  6. MILTEFOSINE [Suspect]
     Active Substance: MILTEFOSINE
     Indication: ACANTHAMOEBA KERATITIS
     Dosage: 50 MG
  7. MILTEFOSINE [Suspect]
     Active Substance: MILTEFOSINE
     Dosage: UNK
  8. PREDNISOLONE ACETATE. [Concomitant]
     Active Substance: PREDNISOLONE ACETATE
     Dosage: UNK, EVERY 2 HOUR(S)
     Route: 061
  9. VORICONAZOLE. [Suspect]
     Active Substance: VORICONAZOLE
     Indication: ACANTHAMOEBA KERATITIS
     Dosage: 200 MG, 2 EVERY 1 DAY(S)
     Route: 048
  10. GATIFLOXACIN. [Concomitant]
     Active Substance: GATIFLOXACIN
     Dosage: UNK, 4 EVERY 1 DAY(S)
  11. POLYHEXANIDE [Suspect]
     Active Substance: POLIHEXANIDE
     Indication: ACANTHAMOEBA KERATITIS
     Route: 061
  12. POLYHEXANIDE [Suspect]
     Active Substance: POLIHEXANIDE
     Dosage: UNK, EVERY 1 HOUR(S)
     Route: 061
  13. PREDNISOLONE. [Concomitant]
     Active Substance: PREDNISOLONE
     Indication: ACANTHAMOEBA KERATITIS
  14. CHLORHEXIDINE [Suspect]
     Active Substance: CHLORHEXIDINE
     Indication: ACANTHAMOEBA KERATITIS
     Dosage: EVERY 2 HOURS
     Route: 061
  15. MILTEFOSINE [Suspect]
     Active Substance: MILTEFOSINE
     Dosage: 50 MG, 1 EVERY 0.5 DAY(S)
     Route: 048
  16. GATIFLOXACIN. [Concomitant]
     Active Substance: GATIFLOXACIN
     Indication: ACANTHAMOEBA KERATITIS
     Dosage: UNK
     Route: 061

REACTIONS (10)
  - Drug intolerance [Unknown]
  - Corneal disorder [Unknown]
  - Ocular toxicity [Unknown]
  - Blood creatinine increased [Unknown]
  - Ill-defined disorder [Unknown]
  - Drug ineffective [Unknown]
  - Decreased appetite [Unknown]
  - Electrolyte imbalance [Unknown]
  - Product use in unapproved indication [Unknown]
  - Therapy non-responder [Unknown]
